FAERS Safety Report 8503610-5 (Version None)
Quarter: 2012Q3

REPORT INFORMATION
  Report Type: 
  Country: None (occurrence: None)
  Receive Date: 20120711
  Receipt Date: 20120526
  Transmission Date: 20120928
  Serious: No
  Sender: FDA-Public Use
  Company Number: US-BAYER-2012-053971

PATIENT

DRUGS (2)
  1. ALEVE (CAPLET) [Suspect]
     Indication: PRODUCT USED FOR UNKNOWN INDICATION
     Dosage: UNK UNK,
     Route: 048
  2. SKELAXIN [Concomitant]

REACTIONS (4)
  - NAUSEA [None]
  - ABDOMINAL DISCOMFORT [None]
  - MALAISE [None]
  - GASTRIC DISORDER [None]
